FAERS Safety Report 8251091-1 (Version None)
Quarter: 2012Q2

REPORT INFORMATION
  Report Type: 
  Country: None (occurrence: None)
  Receive Date: 20120402
  Receipt Date: 20120320
  Transmission Date: 20120825
  Serious: Yes (Life-Threatening)
  Sender: FDA-Public Use
  Company Number: US-DX529-2012DX000076

PATIENT
  Age: 28 Year
  Sex: Female
  Weight: 148.33 kg

DRUGS (1)
  1. KALBITOR [Suspect]
     Indication: HEREDITARY ANGIOEDEMA
     Route: 058
     Dates: start: 20120320, end: 20120320

REACTIONS (4)
  - DRUG INEFFECTIVE [None]
  - ANAPHYLACTIC REACTION [None]
  - PANIC ATTACK [None]
  - MUSCLE CONTRACTIONS INVOLUNTARY [None]
